FAERS Safety Report 9340418 (Version 1)
Quarter: 2013Q2

REPORT INFORMATION
  Report Type: Report from Study
  Country: GB (occurrence: GB)
  Receive Date: 20130610
  Receipt Date: 20130610
  Transmission Date: 20140414
  Serious: Yes (Hospitalization, Other)
  Sender: FDA-Public Use
  Company Number: GB-AMGEN-US290156

PATIENT
  Age: 61 Year
  Sex: Female
  Weight: 47.98 kg

DRUGS (8)
  1. ETANERCEPT [Suspect]
     Indication: RHEUMATOID ARTHRITIS
     Dosage: 25 MG, 2 TIMES/WK
     Route: 058
     Dates: start: 20040625, end: 20051222
  2. METHOTREXATE [Concomitant]
     Dosage: UNK
     Dates: end: 20071220
  3. HYDROXYCHLOROQUINE [Concomitant]
     Dosage: UNK
     Dates: end: 20050331
  4. AMLODIPINE [Concomitant]
     Dosage: UNK
  5. TRAMADOL [Concomitant]
     Dosage: UNK
  6. FOSAMAX [Concomitant]
     Dosage: UNK
  7. CELEBREX [Concomitant]
     Dosage: UNK
  8. CALCICHEW [Concomitant]
     Dosage: UNK

REACTIONS (1)
  - Breast cancer [Unknown]
